FAERS Safety Report 7929471-0 (Version None)
Quarter: 2011Q4

REPORT INFORMATION
  Report Type: 
  Country: None (occurrence: None)
  Receive Date: 20111121
  Receipt Date: 20111114
  Transmission Date: 20120403
  Serious: No
  Sender: FDA-Public Use
  Company Number: US-BIOGENIDEC-2011BI043324

PATIENT
  Age: 47 Year
  Sex: Female

DRUGS (1)
  1. AVONEX [Suspect]
     Indication: MULTIPLE SCLEROSIS
     Route: 030
     Dates: start: 20110723

REACTIONS (6)
  - MUSCULOSKELETAL STIFFNESS [None]
  - DYSSTASIA [None]
  - VISION BLURRED [None]
  - BALANCE DISORDER [None]
  - FALL [None]
  - MUSCLE SPASMS [None]
